FAERS Safety Report 14407680 (Version 15)
Quarter: 2020Q1

REPORT INFORMATION
  Report Type: Report from Study
  Country: US (occurrence: US)
  Receive Date: 20180118
  Receipt Date: 20200207
  Transmission Date: 20200409
  Serious: Yes (Hospitalization, Other)
  Sender: FDA-Public Use
  Company Number: US-ACTELION-A-US2017-156963

PATIENT
  Age: 42 Year
  Sex: Female
  Weight: 84.81 kg

DRUGS (10)
  1. ORENITRAM [Suspect]
     Active Substance: TREPROSTINIL
     Indication: PRODUCT USED FOR UNKNOWN INDICATION
     Dosage: 2.125 MG, UNK
     Route: 065
  2. ADCIRCA [Concomitant]
     Active Substance: TADALAFIL
  3. ADEMPAS [Suspect]
     Active Substance: RIOCIGUAT
     Indication: PRODUCT USED FOR UNKNOWN INDICATION
     Dosage: UNK
     Route: 065
  4. OPSUMIT [Suspect]
     Active Substance: MACITENTAN
     Indication: PULMONARY HYPERTENSION
     Dosage: 10 MG, QD
     Route: 048
  5. OPSUMIT [Suspect]
     Active Substance: MACITENTAN
     Dosage: 10 MG, QD
     Route: 048
  6. ORENITRAM [Suspect]
     Active Substance: TREPROSTINIL
     Dosage: UNK
     Route: 065
     Dates: start: 20181108
  7. REMODULIN [Suspect]
     Active Substance: TREPROSTINIL
     Indication: PRODUCT USED FOR UNKNOWN INDICATION
     Dosage: 34 NG/KG, PER MIN
     Route: 042
  8. ELIQUIS [Concomitant]
     Active Substance: APIXABAN
     Dosage: 5 MG, BID
  9. DILTIAZEM. [Concomitant]
     Active Substance: DILTIAZEM
  10. SPIRONOLACTONE. [Concomitant]
     Active Substance: SPIRONOLACTONE

REACTIONS (42)
  - Nausea [Unknown]
  - Headache [Unknown]
  - Echocardiogram abnormal [Unknown]
  - Injection site rash [Unknown]
  - Fatigue [Unknown]
  - Menstruation irregular [Unknown]
  - Malaise [Unknown]
  - Supraventricular tachycardia [Unknown]
  - Intrauterine contraception [Unknown]
  - Injection site pruritus [Unknown]
  - Infusion site rash [Unknown]
  - Menorrhagia [Unknown]
  - Abdominal pain upper [Unknown]
  - Dizziness [Unknown]
  - Chest pain [Unknown]
  - Muscle tightness [Unknown]
  - Gastric disorder [Unknown]
  - Somnolence [Unknown]
  - Blood pressure systolic decreased [Unknown]
  - Decreased appetite [Unknown]
  - Dyspnoea [Unknown]
  - Fall [Unknown]
  - Asthenia [Unknown]
  - Pulmonary arterial pressure increased [Unknown]
  - Abdominal pain [Unknown]
  - Injection site haemorrhage [Unknown]
  - Injection site warmth [Unknown]
  - Weight decreased [Unknown]
  - Heart rate increased [Unknown]
  - Pain [Unknown]
  - Vomiting [Unknown]
  - Pain in extremity [Unknown]
  - Abdominal distension [Unknown]
  - Hypotension [Unknown]
  - Injection site vesicles [Unknown]
  - Injection site pain [Unknown]
  - Hospitalisation [Unknown]
  - Lethargy [Unknown]
  - Diarrhoea [Unknown]
  - Feeling abnormal [Unknown]
  - General physical health deterioration [Unknown]
  - Injection site erythema [Unknown]

NARRATIVE: CASE EVENT DATE: 201712
